FAERS Safety Report 4723193-5 (Version None)
Quarter: 2005Q3

REPORT INFORMATION
  Report Type: 
  Country: None (occurrence: None)
  Receive Date: 20050722
  Receipt Date: 20050715
  Transmission Date: 20060218
  Serious: Yes (Hospitalization)
  Sender: FDA-Public Use
  Company Number: US-ABBOTT-05P-163-0305951-00

PATIENT
  Sex: Male

DRUGS (3)
  1. DEPAKOTE ER [Suspect]
     Indication: BIPOLAR DISORDER
     Route: 048
  2. ETHANOL [Concomitant]
     Indication: DRUG USE FOR UNKNOWN INDICATION
     Dates: start: 20050704
  3. CRACK [Concomitant]
     Indication: DRUG USE FOR UNKNOWN INDICATION
     Dosage: SMOKE
     Route: 050
     Dates: start: 20050704

REACTIONS (2)
  - DEPRESSION [None]
  - SUICIDAL IDEATION [None]
